FAERS Safety Report 4608562-6 (Version None)
Quarter: 2005Q1

REPORT INFORMATION
  Report Type: 
  Country: None (occurrence: None)
  Receive Date: 20050311
  Receipt Date: 20050311
  Transmission Date: 20050727
  Serious: Yes (Other)
  Sender: FDA-Public Use
  Company Number: None

PATIENT

DRUGS (2)
  1. CISPLATIN [Suspect]
  2. DOCETAXEL [Suspect]

REACTIONS (4)
  - BLOOD CREATININE INCREASED [None]
  - PRURITUS [None]
  - RASH [None]
  - SKIN EXFOLIATION [None]
